FAERS Safety Report 4735080-7 (Version None)
Quarter: 2005Q3

REPORT INFORMATION
  Report Type: 
  Country: None (occurrence: None)
  Receive Date: 20050804
  Receipt Date: 20050506
  Transmission Date: 20060218
  Serious: Yes (Disabling)
  Sender: FDA-Public Use
  Company Number: US-MERCK-0505USA00859

PATIENT
  Age: 63 Year
  Sex: Male
  Weight: 95 kg

DRUGS (8)
  1. VIOXX [Suspect]
     Indication: GOUT
     Route: 048
     Dates: start: 20010123, end: 20021001
  2. VIOXX [Suspect]
     Route: 048
     Dates: start: 20021001, end: 20040430
  3. PREDNISONE [Concomitant]
     Route: 065
  4. LEVITRA [Concomitant]
     Route: 065
  5. LORTAB [Concomitant]
     Route: 065
  6. TYLENOL (CAPLET) [Concomitant]
     Route: 065
  7. CELEBREX [Concomitant]
     Route: 065
  8. ASPIRIN [Suspect]
     Route: 065
     Dates: start: 20020808, end: 20031001

REACTIONS (9)
  - ATHEROSCLEROSIS [None]
  - CEREBROVASCULAR ACCIDENT [None]
  - DIABETES MELLITUS NON-INSULIN-DEPENDENT [None]
  - DYSPEPSIA [None]
  - HYPERTENSION [None]
  - OVERDOSE [None]
  - PEPTIC ULCER [None]
  - RENAL DISORDER [None]
  - RENAL FAILURE [None]
